FAERS Safety Report 7533642-5 (Version None)
Quarter: 2011Q2

REPORT INFORMATION
  Report Type: 
  Country: None (occurrence: None)
  Receive Date: 20110608
  Receipt Date: 20110526
  Transmission Date: 20111010
  Serious: Yes (Hospitalization)
  Sender: FDA-Public Use
  Company Number: US-UCBSA-033398

PATIENT
  Sex: Male

DRUGS (2)
  1. DILANTIN [Concomitant]
     Indication: EPILEPSY
     Dates: start: 20020101
  2. KEPPRA XR [Suspect]
     Indication: EPILEPSY
     Dates: start: 20020101

REACTIONS (2)
  - HIP FRACTURE [None]
  - CONVULSION [None]
